FAERS Safety Report 14790721 (Version 1)
Quarter: 2018Q2

REPORT INFORMATION
  Report Type: Spontaneous
  Country: FR (occurrence: FR)
  Receive Date: 20180423
  Receipt Date: 20180423
  Transmission Date: 20180711
  Serious: Yes (Other)
  Sender: FDA-Public Use
  Company Number: FR-MERCK KGAA-2046280

PATIENT
  Sex: Female

DRUGS (1)
  1. NOVOTHYROX [Suspect]
     Active Substance: LEVOTHYROXINE SODIUM
     Indication: PRODUCT USED FOR UNKNOWN INDICATION
     Dates: start: 2017

REACTIONS (14)
  - Asthenia [None]
  - Decreased interest [None]
  - Hypertension [Recovering/Resolving]
  - Headache [None]
  - Fatigue [None]
  - Irritability [None]
  - Myalgia [None]
  - Memory impairment [None]
  - Stress [None]
  - Impaired driving ability [None]
  - Confusional state [None]
  - Loss of personal independence in daily activities [None]
  - Abdominal pain upper [None]
  - Nausea [None]
